FAERS Safety Report 18043384 (Version 2)
Quarter: 2020Q3

REPORT INFORMATION
  Report Type: Spontaneous
  Country: JP (occurrence: JP)
  Receive Date: 20200720
  Receipt Date: 20200811
  Transmission Date: 20201103
  Serious: Yes (Hospitalization)
  Sender: FDA-Public Use
  Company Number: NVSJ2020JP006757

PATIENT
  Age: 54 Year
  Sex: Male

DRUGS (1)
  1. EQUMET [Suspect]
     Active Substance: METFORMIN HYDROCHLORIDE\VILDAGLIPTIN
     Indication: PRODUCT USED FOR UNKNOWN INDICATION
     Dosage: 1 DF:METFORMIN UNKNOWN VILDAGLIPTIN 50MG
     Route: 048

REACTIONS (3)
  - Hernia [Recovering/Resolving]
  - Pubic pain [Recovering/Resolving]
  - Hypoaesthesia [Recovering/Resolving]
